FAERS Safety Report 12490976 (Version 2)
Quarter: 2016Q2

REPORT INFORMATION
  Report Type: Other
  Country: GB (occurrence: GB)
  Receive Date: 20160623
  Receipt Date: 20160630
  Transmission Date: 20160815
  Serious: Yes (Other)
  Sender: FDA-Public Use
  Company Number: GB-CIPLA LTD.-2016GB07289

PATIENT

DRUGS (4)
  1. APREPITANT. [Suspect]
     Active Substance: APREPITANT
     Dosage: UNK
     Route: 048
  2. CARBOPLATIN. [Suspect]
     Active Substance: CARBOPLATIN
     Indication: CHEMOTHERAPY
     Dosage: UNK
     Route: 065
  3. AVASTIN [Suspect]
     Active Substance: BEVACIZUMAB
     Indication: CHEMOTHERAPY
     Dosage: UNK
     Route: 065
  4. GEMCITABINE [Suspect]
     Active Substance: GEMCITABINE\GEMCITABINE HYDROCHLORIDE
     Indication: CHEMOTHERAPY
     Dosage: UNK
     Route: 065

REACTIONS (15)
  - Abdominal operation [Unknown]
  - Abdominal pain [Unknown]
  - Intestinal scarring [Unknown]
  - Intestinal strangulation [Unknown]
  - Facial asymmetry [Unknown]
  - Dysgeusia [Unknown]
  - Constipation [Recovered/Resolved]
  - Fatigue [Unknown]
  - Constipation [Unknown]
  - Oral disorder [Unknown]
  - Pain in extremity [Unknown]
  - Feeling abnormal [Unknown]
  - Vision blurred [Unknown]
  - Change of bowel habit [Unknown]
  - Insomnia [Unknown]

NARRATIVE: CASE EVENT DATE: 2013
